FAERS Safety Report 24066646 (Version 2)
Quarter: 2024Q3

REPORT INFORMATION
  Report Type: Spontaneous
  Country: CN (occurrence: CN)
  Receive Date: 20240709
  Receipt Date: 20240709
  Transmission Date: 20241016
  Serious: Yes (Death, Hospitalization)
  Sender: ROCHE
  Company Number: CN-ROCHE-10000007278

PATIENT
  Age: 48 Year
  Sex: Male
  Weight: 52 kg

DRUGS (2)
  1. ERLOTINIB HYDROCHLORIDE [Suspect]
     Active Substance: ERLOTINIB HYDROCHLORIDE
     Indication: Hepatic cancer
     Route: 065
  2. SORAFENIB [Suspect]
     Active Substance: SORAFENIB
     Indication: Hepatic cancer
     Route: 065

REACTIONS (3)
  - Gastrointestinal ulcer [Fatal]
  - Renal failure [Fatal]
  - Off label use [Unknown]

NARRATIVE: CASE EVENT DATE: 20091101
